FAERS Safety Report 4701027-2 (Version None)
Quarter: 2005Q2

REPORT INFORMATION
  Report Type: 
  Country: None (occurrence: None)
  Receive Date: 20050627
  Receipt Date: 20050627
  Transmission Date: 20051028
  Serious: No
  Sender: FDA-Public Use
  Company Number: None

PATIENT
  Sex: Female
  Weight: 54.8852 kg

DRUGS (4)
  1. ABRAXANE [Suspect]
     Indication: BREAST CANCER
     Dosage: 260MG/M2  IV
     Route: 042
     Dates: start: 20050624
  2. DECADRON [Concomitant]
  3. KYTRIL [Concomitant]
  4. ATIVAN [Concomitant]

REACTIONS (5)
  - DYSPHAGIA [None]
  - GLOSSODYNIA [None]
  - ORAL DISCOMFORT [None]
  - PARAESTHESIA ORAL [None]
  - THROAT IRRITATION [None]
